FAERS Safety Report 13555828 (Version 1)
Quarter: 2017Q2

REPORT INFORMATION
  Report Type: Spontaneous
  Country: FR (occurrence: FR)
  Receive Date: 20170517
  Receipt Date: 20170517
  Transmission Date: 20170830
  Serious: Yes (Hospitalization)
  Sender: FDA-Public Use
  Company Number: FR-PFIZER INC-2017206929

PATIENT
  Age: 39 Year
  Sex: Male

DRUGS (7)
  1. 4-MEC [Concomitant]
     Dosage: 0.25 G, 2X/DAY
     Route: 048
  2. VIAGRA [Suspect]
     Active Substance: SILDENAFIL CITRATE
     Dosage: 1 DF, SINGLE
     Route: 048
  3. ECSTASY [Concomitant]
     Active Substance: MIDOMAFETAMINE
     Dosage: 1 DF, SINGLE IN THE EARLY EVENING
  4. GAMMA-BUTYROLACTONE [Concomitant]
     Active Substance: BUTYROLACTONE
     Dosage: 2 ML, 2X/DAY
     Route: 048
  5. ALCOOL [Concomitant]
     Active Substance: ALCOHOL
     Dosage: 2 DF, SINGLE (2 GLASSES)
  6. CODEINE [Concomitant]
     Active Substance: CODEINE
     Indication: ANALGESIC THERAPY
     Dosage: REGULAR USE
  7. CANNABIS [Concomitant]
     Active Substance: CANNABIS SATIVA SUBSP. INDICA TOP
     Dosage: OCCASIONAL USE

REACTIONS (2)
  - Coma [Recovered/Resolved]
  - Drug use disorder [Unknown]

NARRATIVE: CASE EVENT DATE: 20170309
